FAERS Safety Report 7669066-X (Version None)
Quarter: 2011Q3

REPORT INFORMATION
  Report Type: 
  Country: None (occurrence: None)
  Receive Date: 20110808
  Receipt Date: 20110729
  Transmission Date: 20111222
  Serious: Yes (Other)
  Sender: FDA-Public Use
  Company Number: US-BAYER-2011-056659

PATIENT
  Age: 36 Year
  Sex: Female
  Weight: 66 kg

DRUGS (8)
  1. LEXAPRO [Concomitant]
     Indication: DEPRESSION
     Dosage: UNK
  2. SYNTHROID [Concomitant]
     Indication: HYPOTHYROIDISM
     Dosage: UNK
     Dates: start: 20020801
  3. CALCIUM [CALCIUM] [Concomitant]
  4. VITAMIN TAB [Concomitant]
     Dosage: UNK
     Dates: start: 20020101
  5. NAPROXEN (ALEVE) [Concomitant]
     Dosage: UNK UNK, PRN
  6. XANAX [Concomitant]
  7. YAZ [Suspect]
     Indication: PREMENSTRUAL SYNDROME
     Dosage: UNK
     Dates: start: 20070701, end: 20090701
  8. VITAMIN B [Concomitant]

REACTIONS (3)
  - CHOLELITHIASIS [None]
  - CHOLECYSTITIS CHRONIC [None]
  - ABDOMINAL PAIN UPPER [None]
